FAERS Safety Report 24978261 (Version 1)
Quarter: 2025Q1

REPORT INFORMATION
  Report Type: Report from Study
  Country: PH (occurrence: PH)
  Receive Date: 20250217
  Receipt Date: 20250217
  Transmission Date: 20250408
  Serious: Yes (Death)
  Sender: OTSUKA
  Company Number: PH-MMM-Otsuka-16X4GNRK

PATIENT
  Sex: Female

DRUGS (2)
  1. TOLVAPTAN [Suspect]
     Active Substance: TOLVAPTAN
     Indication: Product used for unknown indication
     Route: 048
     Dates: start: 20230206
  2. TOLVAPTAN [Suspect]
     Active Substance: TOLVAPTAN
     Dosage: 0.25 DF, TIW (15MG 1/4 TABLET 3X TIMES A WEEK MWF)
     Route: 065

REACTIONS (4)
  - Myocardial infarction [Fatal]
  - Inappropriate schedule of product administration [Unknown]
  - Underdose [Unknown]
  - Wrong technique in product usage process [Unknown]
